FAERS Safety Report 7954150-3 (Version None)
Quarter: 2011Q4

REPORT INFORMATION
  Report Type: 
  Country: None (occurrence: None)
  Receive Date: 20111129
  Receipt Date: 20111114
  Transmission Date: 20120403
  Serious: Yes (Death)
  Sender: FDA-Public Use
  Company Number: LMI-2011-00956

PATIENT

DRUGS (1)
  1. DEFINITY (PERFLUTREN) [Suspect]
     Indication: PRODUCT USED FOR UNKNOWN INDICATION
     Dosage: UNK (UNK)

REACTIONS (1)
  - DEATH [None]
